FAERS Safety Report 5225402-5 (Version None)
Quarter: 2007Q1

REPORT INFORMATION
  Report Type: 
  Country: None (occurrence: None)
  Receive Date: 20070131
  Receipt Date: 20070122
  Transmission Date: 20070707
  Serious: Yes (Death)
  Sender: FDA-Public Use
  Company Number: CZ-ABBOTT-07P-217-0356599-00

PATIENT
  Sex: Female
  Weight: 50 kg

DRUGS (11)
  1. ZEMPLAR [Suspect]
     Indication: HYPERPARATHYROIDISM SECONDARY
     Dosage: DURING HEMODIALYSIS
     Route: 042
     Dates: start: 20060525, end: 20061130
  2. ZEMPLAR [Suspect]
     Indication: RENAL FAILURE CHRONIC
  3. DONAGAN [Concomitant]
     Indication: HEADACHE
     Route: 048
  4. DARBEPOETIN ALFA [Concomitant]
     Indication: DRUG USE FOR UNKNOWN INDICATION
     Route: 042
  5. DARBEPOETIN ALFA [Concomitant]
     Route: 042
  6. DUOVENT [Concomitant]
     Indication: DRUG USE FOR UNKNOWN INDICATION
  7. FUROSEMIDE [Concomitant]
     Indication: DRUG USE FOR UNKNOWN INDICATION
     Route: 048
  8. FENIPENTOL [Concomitant]
     Indication: DRUG USE FOR UNKNOWN INDICATION
     Route: 048
  9. BUDESONIDE [Concomitant]
     Indication: DRUG USE FOR UNKNOWN INDICATION
  10. OMEPRAZOLE [Concomitant]
     Indication: DRUG USE FOR UNKNOWN INDICATION
     Route: 048
  11. ALLOPURINOL SODIUM [Concomitant]
     Indication: DRUG USE FOR UNKNOWN INDICATION
     Route: 048

REACTIONS (4)
  - BLEEDING TIME PROLONGED [None]
  - HYPERHIDROSIS [None]
  - NAUSEA [None]
  - VASCULAR RUPTURE [None]
